FAERS Safety Report 4735745-7 (Version None)
Quarter: 2005Q3

REPORT INFORMATION
  Report Type: 
  Country: None (occurrence: None)
  Receive Date: 20050801
  Receipt Date: 20050801
  Transmission Date: 20060218
  Serious: Yes (Hospitalization)
  Sender: FDA-Public Use
  Company Number: None

PATIENT
  Age: 55 Year
  Sex: Male

DRUGS (2)
  1. GEMCITABINE [Suspect]
     Indication: BLADDER CANCER
     Dosage: 2310 MG IV X1
     Route: 042
     Dates: start: 20050509
  2. CARBOPLATIN [Suspect]
     Dosage: 370 MG IV X1
     Route: 042
     Dates: start: 20050509

REACTIONS (4)
  - NAUSEA [None]
  - PANCYTOPENIA [None]
  - RENAL FAILURE ACUTE [None]
  - VOMITING [None]
